FAERS Safety Report 5237088-4 (Version None)
Quarter: 2007Q1

REPORT INFORMATION
  Report Type: 
  Country: None (occurrence: None)
  Receive Date: 20070209
  Receipt Date: 20070202
  Transmission Date: 20070707
  Serious: Yes (Other)
  Sender: FDA-Public Use
  Company Number: 237524K06USA

PATIENT
  Age: 42 Year
  Sex: Female
  Weight: 55.7924 kg

DRUGS (2)
  1. REBIF [Suspect]
     Indication: MULTIPLE SCLEROSIS
     Dosage: 44 MCG, 3 IN 1 WEEKS; SUBCUTANEOUS
     Route: 058
     Dates: start: 20051109
  2. CONTRACEPTIVE (ORAL) [Concomitant]

REACTIONS (1)
  - DIABETES MELLITUS [None]
